FAERS Safety Report 7113163-4 (Version None)
Quarter: 2010Q4

REPORT INFORMATION
  Report Type: 
  Country: None (occurrence: None)
  Receive Date: 20101119
  Receipt Date: 20101112
  Transmission Date: 20110411
  Serious: Yes (Hospitalization)
  Sender: FDA-Public Use
  Company Number: US-US-EMD SERONO, INC.-231122J09USA

PATIENT
  Sex: Female
  Weight: 66 kg

DRUGS (8)
  1. REBIF [Suspect]
     Indication: MULTIPLE SCLEROSIS
     Route: 058
     Dates: start: 20090221, end: 20091001
  2. ESTROGEN/PROGESTERONE [Suspect]
     Indication: HOT FLUSH
     Route: 065
  3. LEXAPRO [Concomitant]
     Indication: DEPRESSION
     Route: 065
  4. LISINOPRIL [Concomitant]
     Indication: HYPERTENSION
     Route: 065
  5. AMITRIPTYLINE HCL [Concomitant]
     Indication: SLEEP DISORDER
     Route: 065
  6. GABAPENTIN [Concomitant]
     Indication: RESTLESS LEGS SYNDROME
     Route: 065
  7. CALCIUM [Concomitant]
     Indication: ROUTINE HEALTH MAINTENANCE
     Route: 065
  8. VITAMIN D [Concomitant]
     Indication: MULTIPLE SCLEROSIS
     Route: 065

REACTIONS (3)
  - INFLUENZA LIKE ILLNESS [None]
  - INJECTION SITE PAIN [None]
  - UTERINE LEIOMYOMA [None]
